FAERS Safety Report 8190303-X (Version None)
Quarter: 2012Q1

REPORT INFORMATION
  Report Type: 
  Country: None (occurrence: None)
  Receive Date: 20120307
  Receipt Date: 20120302
  Transmission Date: 20120608
  Serious: Yes (Life-Threatening, Hospitalization)
  Sender: FDA-Public Use
  Company Number: US-MEDIMMUNE-MEDI-0014111

PATIENT
  Sex: Female
  Weight: 1.544 kg

DRUGS (2)
  1. POLY VI SOL [Concomitant]
     Route: 048
  2. SYNAGIS [Suspect]
     Route: 030
     Dates: start: 20111108, end: 20111206

REACTIONS (5)
  - CYANOSIS [None]
  - DYSKINESIA [None]
  - PALLOR [None]
  - LISTLESS [None]
  - INCREASED UPPER AIRWAY SECRETION [None]
